FAERS Safety Report 8495595-5 (Version None)
Quarter: 2012Q3

REPORT INFORMATION
  Report Type: 
  Country: None (occurrence: None)
  Receive Date: 20120709
  Receipt Date: 20120628
  Transmission Date: 20120928
  Serious: Yes (Other)
  Sender: FDA-Public Use
  Company Number: JP-MSD-2012SP036401

PATIENT

DRUGS (9)
  1. REBETOL [Suspect]
     Indication: HEPATITIS C
     Dosage: 400 MG, QD
     Route: 048
     Dates: start: 20120412
  2. PEGINTERFERON ALFA-2B [Suspect]
     Dosage: 1.4 A?G/KG, QW
     Route: 058
     Dates: start: 20120502, end: 20120613
  3. REBETOL [Suspect]
     Dosage: 600 MG, QD
     Route: 048
     Dates: start: 20120418
  4. ANTIVIRAL (UNSPECIFIED) [Suspect]
     Dosage: 1000 MG, QD
     Route: 048
     Dates: start: 20120604
  5. FAMOGAST [Concomitant]
     Indication: PRODUCT USED FOR UNKNOWN INDICATION
     Dosage: 20 MG, QD
     Route: 048
     Dates: start: 20120413
  6. ANTIVIRAL (UNSPECIFIED) [Suspect]
     Dosage: 750 MG, QD
     Route: 048
     Dates: start: 20120613
  7. ANTIVIRAL (UNSPECIFIED) [Suspect]
     Dosage: 1500 MG, QD
     Route: 048
     Dates: start: 20120509
  8. PEGINTERFERON ALFA-2B [Suspect]
     Indication: HEPATITIS C
     Dosage: 1.5 A?G/KG, QW
     Route: 058
     Dates: start: 20120412, end: 20120501
  9. ANTIVIRAL (UNSPECIFIED) [Suspect]
     Indication: HEPATITIS C
     Dosage: 2250 MG, QD
     Route: 048
     Dates: start: 20120412, end: 20120508

REACTIONS (1)
  - SKIN DISORDER [None]
